FAERS Safety Report 10679841 (Version 1)
Quarter: 2014Q4

REPORT INFORMATION
  Report Type: Spontaneous
  Country: US (occurrence: US)
  Receive Date: 20141229
  Receipt Date: 20141229
  Transmission Date: 20150529
  Serious: No
  Sender: FDA-Public Use
  Company Number: US-PFIZER INC-2014352348

PATIENT
  Age: 74 Year
  Sex: Female
  Weight: 58.5 kg

DRUGS (1)
  1. ATORVASTATIN CALCIUM. [Suspect]
     Active Substance: ATORVASTATIN CALCIUM
     Dosage: 20 MG, 1X/DAY
     Dates: end: 2014

REACTIONS (2)
  - Muscle spasms [Recovering/Resolving]
  - Insomnia [Recovered/Resolved]
